FAERS Safety Report 10974025 (Version 2)
Quarter: 2015Q2

REPORT INFORMATION
  Report Type: Spontaneous
  Country: US (occurrence: US)
  Receive Date: 20150401
  Receipt Date: 20150505
  Transmission Date: 20150821
  Serious: Yes (Hospitalization, Other)
  Sender: FDA-Public Use
  Company Number: US-BAYER-2015-090392

PATIENT
  Age: 21 Year
  Sex: Female
  Weight: 49.89 kg

DRUGS (3)
  1. MIRENA [Suspect]
     Active Substance: LEVONORGESTREL
     Indication: CONTRACEPTION
     Dosage: 20 MCG/24HR, CONT
     Route: 015
     Dates: start: 20121210, end: 20130712
  2. MULTIVITAMIN [Concomitant]
     Active Substance: VITAMINS
  3. ORTHO TRI CYCLEN [Concomitant]
     Active Substance: ETHINYL ESTRADIOL\NORGESTIMATE

REACTIONS (9)
  - Uterine perforation [None]
  - Dyspareunia [None]
  - Pelvic discomfort [None]
  - Pain [None]
  - Menstruation irregular [None]
  - Genital haemorrhage [None]
  - Emotional distress [None]
  - Injury [None]
  - Abdominal pain lower [None]

NARRATIVE: CASE EVENT DATE: 201212
